FAERS Safety Report 7495585-5 (Version None)
Quarter: 2011Q2

REPORT INFORMATION
  Report Type: 
  Country: None (occurrence: None)
  Receive Date: 20110523
  Receipt Date: 20110510
  Transmission Date: 20111010
  Serious: No
  Sender: FDA-Public Use
  Company Number: US-JNJFOC-20110505748

PATIENT
  Sex: Female
  Weight: 64.86 kg

DRUGS (6)
  1. PERCOCET [Concomitant]
     Indication: BREAKTHROUGH PAIN
     Dosage: 10 MG/325
     Route: 048
  2. DURAGESIC-100 [Suspect]
     Indication: BACK PAIN
     Route: 062
  3. DURAGESIC-100 [Suspect]
     Route: 062
  4. ACETAMINOPHEN [Suspect]
     Route: 048
  5. ACETAMINOPHEN [Suspect]
     Indication: PAIN
     Route: 048
  6. NUCYNTA [Suspect]
     Indication: PAIN
     Route: 048
     Dates: start: 20100101, end: 20100101

REACTIONS (8)
  - NAUSEA [None]
  - BACK PAIN [None]
  - NECK PAIN [None]
  - WRONG TECHNIQUE IN DRUG USAGE PROCESS [None]
  - APPLICATION SITE IRRITATION [None]
  - DRUG ADMINISTERED AT INAPPROPRIATE SITE [None]
  - PRODUCT ADHESION ISSUE [None]
  - EUPHORIC MOOD [None]
